FAERS Safety Report 25609638 (Version 2)
Quarter: 2025Q3

REPORT INFORMATION
  Report Type: Spontaneous
  Country: AU (occurrence: AU)
  Receive Date: 20250728
  Receipt Date: 20250729
  Transmission Date: 20251020
  Serious: Yes (Hospitalization)
  Sender: GENMAB
  Company Number: AU-ABBVIE-6385192

PATIENT
  Sex: Male

DRUGS (2)
  1. EPCORITAMAB [Suspect]
     Active Substance: EPCORITAMAB
     Indication: Product used for unknown indication
     Route: 058
  2. EPCORITAMAB [Suspect]
     Active Substance: EPCORITAMAB
     Route: 058
     Dates: start: 20250722, end: 20250722

REACTIONS (3)
  - C-reactive protein increased [Unknown]
  - Body temperature decreased [Unknown]
  - Infection [Unknown]

NARRATIVE: CASE EVENT DATE: 20250701
